FAERS Safety Report 8398032-4 (Version None)
Quarter: 2012Q1

REPORT INFORMATION
  Report Type: 
  Country: None (occurrence: None)
  Receive Date: 20120323
  Receipt Date: 20110201
  Transmission Date: 20120608
  Serious: Yes (Other)
  Sender: FDA-Public Use
  Company Number: 163-21880-11011495

PATIENT
  Age: 79 Year
  Sex: Female

DRUGS (7)
  1. DIOVAN [Concomitant]
  2. MEGACE [Concomitant]
  3. FOSAMAX [Concomitant]
  4. REVLIMID [Suspect]
     Indication: MULTIPLE MYELOMA
     Dosage: 15 MG, ON 21 DAYS/OFF 7 DAYS, PO
     Route: 048
     Dates: start: 20100801, end: 20101101
  5. DECADRON [Concomitant]
  6. METHOTREXATE [Concomitant]
  7. FOLIC ACID [Concomitant]

REACTIONS (1)
  - PANCYTOPENIA [None]
